FAERS Safety Report 10884197 (Version 1)
Quarter: 2015Q1

REPORT INFORMATION
  Report Type: Spontaneous
  Country: US (occurrence: US)
  Receive Date: 20150304
  Receipt Date: 20150304
  Transmission Date: 20150721
  Serious: No
  Sender: FDA-Public Use
  Company Number: US-BIOGENIDEC-2015BI019471

PATIENT
  Age: 57 Year
  Sex: Female

DRUGS (1)
  1. TECFIDERA [Suspect]
     Active Substance: DIMETHYL FUMARATE
     Indication: MULTIPLE SCLEROSIS
     Route: 048
     Dates: start: 201408

REACTIONS (6)
  - Blood glucose increased [Unknown]
  - Tongue blistering [Unknown]
  - Blood glucose decreased [Unknown]
  - Flushing [Not Recovered/Not Resolved]
  - Tongue discolouration [Unknown]
  - Memory impairment [Unknown]

NARRATIVE: CASE EVENT DATE: 201408
